FAERS Safety Report 25825590 (Version 1)
Quarter: 2025Q3

REPORT INFORMATION
  Report Type: Spontaneous
  Country: EU (occurrence: EU)
  Receive Date: 20250919
  Receipt Date: 20250919
  Transmission Date: 20251020
  Serious: Yes (Other)
  Sender: REGENERON
  Company Number: EU-REGENERON PHARMACEUTICALS, INC.-2025-148199

PATIENT
  Age: 73 Year
  Sex: Male

DRUGS (1)
  1. LIBTAYO [Suspect]
     Active Substance: CEMIPLIMAB-RWLC
     Indication: Squamous cell carcinoma of skin
     Dates: start: 202312, end: 202509

REACTIONS (8)
  - Pulmonary embolism [Recovered/Resolved]
  - Fatigue [Recovered/Resolved]
  - Listless [Unknown]
  - Fatigue [Unknown]
  - Solar lentigo [Unknown]
  - Spider naevus [Unknown]
  - Acne [Unknown]
  - Skin lesion [Unknown]

NARRATIVE: CASE EVENT DATE: 20231201
